FAERS Safety Report 8544423-8 (Version None)
Quarter: 2012Q3

REPORT INFORMATION
  Report Type: 
  Country: None (occurrence: None)
  Receive Date: 20120727
  Receipt Date: 20120723
  Transmission Date: 20120928
  Serious: Yes (Hospitalization)
  Sender: FDA-Public Use
  Company Number: US-GILEAD-2012-0057980

PATIENT
  Sex: Male

DRUGS (1)
  1. LETAIRIS [Suspect]
     Indication: PRODUCT USED FOR UNKNOWN INDICATION
     Dosage: 5 MG, UNK
     Route: 048
     Dates: start: 20120529, end: 20120706

REACTIONS (8)
  - VISUAL IMPAIRMENT [None]
  - EYE DISORDER [None]
  - SWELLING [None]
  - GASTRIC DISORDER [None]
  - COAGULOPATHY [None]
  - LABORATORY TEST ABNORMAL [None]
  - CEREBROVASCULAR ACCIDENT [None]
  - PRURITUS [None]
